FAERS Safety Report 5493488-9 (Version None)
Quarter: 2007Q4

REPORT INFORMATION
  Report Type: 
  Country: None (occurrence: None)
  Receive Date: 20071023
  Receipt Date: 20071012
  Transmission Date: 20080405
  Serious: Yes (Hospitalization)
  Sender: FDA-Public Use
  Company Number: US-ELI_LILLY_AND_COMPANY-US200710003367

PATIENT
  Age: 60 Year
  Sex: Female

DRUGS (9)
  1. HUMALOG MIX 75/25 [Suspect]
     Dates: start: 20030101
  2. GLUCOVANCE [Concomitant]
  3. NEUROPAX [Concomitant]
  4. NEURONTIN [Concomitant]
  5. EFFEXOR [Concomitant]
  6. LASIX [Concomitant]
  7. SINGULAIR [Concomitant]
  8. PLAVIX [Concomitant]
  9. ASPIRIN [Concomitant]

REACTIONS (3)
  - ASTHMA [None]
  - CARDIAC DISORDER [None]
  - MUSCLE SPASMS [None]
